FAERS Safety Report 6835424-6 (Version None)
Quarter: 2010Q2

REPORT INFORMATION
  Report Type: 
  Country: None (occurrence: None)
  Receive Date: 20100520
  Receipt Date: 20090521
  Transmission Date: 20101027
  Serious: Yes (Other)
  Sender: FDA-Public Use
  Company Number: 2009216996

PATIENT
  Age: 71 Year
  Sex: Female

DRUGS (5)
  1. PROVERA [Suspect]
     Indication: HORMONE REPLACEMENT THERAPY
     Dosage: ORAL
     Route: 048
     Dates: start: 19981207, end: 19991227
  2. ESTRACE [Suspect]
     Indication: HORMONE REPLACEMENT THERAPY
     Dates: start: 19981207, end: 19991227
  3. CLARITIN [Concomitant]
  4. BAYCOL [Concomitant]
  5. PRILOSEC (OMEPRAZOLE) [Concomitant]

REACTIONS (1)
  - BREAST CANCER [None]
